FAERS Safety Report 17564458 (Version 1)
Quarter: 2020Q1

REPORT INFORMATION
  Report Type: Spontaneous
  Country: US (occurrence: US)
  Receive Date: 20200320
  Receipt Date: 20200320
  Transmission Date: 20200409
  Serious: Yes (Other)
  Sender: FDA-Public Use
  Company Number: US-SA-2020SA069189

PATIENT
  Age: 46 Year
  Sex: Female

DRUGS (1)
  1. LANTUS SOLOSTAR [Suspect]
     Active Substance: INSULIN GLARGINE
     Indication: TYPE 2 DIABETES MELLITUS
     Dosage: 45 IU, BID
     Route: 065

REACTIONS (6)
  - Product dose omission [Unknown]
  - Wrong technique in device usage process [Unknown]
  - Epilepsy [Unknown]
  - Seizure [Unknown]
  - Inappropriate schedule of product administration [Unknown]
  - Product storage error [Unknown]
